FAERS Safety Report 6891949-9 (Version None)
Quarter: 2010Q3

REPORT INFORMATION
  Report Type: 
  Country: None (occurrence: None)
  Receive Date: 20100731
  Receipt Date: 20071201
  Transmission Date: 20110219
  Serious: No
  Sender: FDA-Public Use
  Company Number: US-PFIZER INC-2007082468

PATIENT
  Sex: Female
  Weight: 68.2 kg

DRUGS (6)
  1. NEURONTIN [Suspect]
     Indication: DIABETIC NEUROPATHY
     Dosage: QHS EVERY DAY
     Route: 048
     Dates: end: 20070901
  2. ATIVAN [Concomitant]
  3. SINEQUAN [Concomitant]
  4. AVANDIA [Concomitant]
  5. VALSARTAN [Concomitant]
     Indication: HYPERTENSION
  6. METFORMIN HCL [Concomitant]

REACTIONS (2)
  - DRUG INEFFECTIVE [None]
  - INSOMNIA [None]
